FAERS Safety Report 17314533 (Version 1)
Quarter: 2020Q1

REPORT INFORMATION
  Report Type: Spontaneous
  Country: US (occurrence: US)
  Receive Date: 20200123
  Receipt Date: 20200123
  Transmission Date: 20200409
  Serious: Yes (Other)
  Sender: FDA-Public Use
  Company Number: None

PATIENT
  Age: 56 Year
  Sex: Female
  Weight: 69.3 kg

DRUGS (1)
  1. BELVIQ [Suspect]
     Active Substance: LORCASERIN HYDROCHLORIDE
     Indication: WEIGHT DECREASED
     Route: 048
     Dates: start: 20181217, end: 20191119

REACTIONS (7)
  - Metastases to lung [None]
  - Hysterosalpingo-oophorectomy [None]
  - Fallopian tube cancer metastatic [None]
  - Pulmonary mass [None]
  - Metastases to liver [None]
  - Pelvic mass [None]
  - Metastases to peritoneum [None]

NARRATIVE: CASE EVENT DATE: 20191119
